FAERS Safety Report 17516001 (Version 1)
Quarter: 2020Q1

REPORT INFORMATION
  Report Type: Report from Study
  Country: CA (occurrence: CA)
  Receive Date: 20200309
  Receipt Date: 20200309
  Transmission Date: 20200409
  Serious: Yes (Hospitalization, Other)
  Sender: FDA-Public Use
  Company Number: CA-GLAXOSMITHKLINE-CA2020AMR021369

PATIENT
  Sex: Male

DRUGS (2)
  1. MEPOLIZUMAB [Suspect]
     Active Substance: MEPOLIZUMAB
     Dosage: 100 MG, Z
     Route: 042
  2. MEPOLIZUMAB [Suspect]
     Active Substance: MEPOLIZUMAB
     Indication: ASTHMA
     Dosage: 100 MG, Z (MONTHLY)
     Route: 042
     Dates: start: 20170404

REACTIONS (8)
  - Dyslipidaemia [Unknown]
  - Angioplasty [Unknown]
  - Influenza [Unknown]
  - Myocardial infarction [Unknown]
  - Angina pectoris [Unknown]
  - Bronchiectasis [Unknown]
  - Pneumonia [Unknown]
  - Asthma [Unknown]
